FAERS Safety Report 5153765-8 (Version None)
Quarter: 2006Q4

REPORT INFORMATION
  Report Type: 
  Country: None (occurrence: None)
  Receive Date: 20061120
  Receipt Date: 20061026
  Transmission Date: 20070319
  Serious: Yes (Other)
  Sender: FDA-Public Use
  Company Number: US-ELI_LILLY_AND_COMPANY-US200611001700

PATIENT
  Age: 38 Year
  Sex: Male

DRUGS (6)
  1. OLANZAPINE [Suspect]
     Dosage: 10 MG, DAILY (1/D)
  2. OLANZAPINE [Suspect]
     Dosage: 15 MG, DAILY (1/D)
  3. OLANZAPINE [Suspect]
     Dosage: 20 MG, DAILY (1/D)
  4. DIDANOSINE [Concomitant]
  5. ZALCITABINE [Concomitant]
  6. LOXAPINE [Concomitant]
     Dosage: 250 MG, DAILY (1/D)

REACTIONS (2)
  - MANIA [None]
  - PSYCHOTIC DISORDER [None]
